FAERS Safety Report 4772361-5 (Version None)
Quarter: 2005Q3

REPORT INFORMATION
  Report Type: 
  Country: None (occurrence: None)
  Receive Date: 20050919
  Receipt Date: 20041105
  Transmission Date: 20060218
  Serious: No
  Sender: FDA-Public Use
  Company Number: US-BRISTOL-MYERS SQUIBB COMPANY-12758058

PATIENT
  Age: 19 Year
  Sex: Female

DRUGS (1)
  1. KENALOG-40 [Suspect]
     Route: 030
     Dates: start: 20040707, end: 20040707

REACTIONS (2)
  - INJECTION SITE ATROPHY [None]
  - INJECTION SITE DISCOLOURATION [None]
